FAERS Safety Report 14671977 (Version 1)
Quarter: 2018Q1

REPORT INFORMATION
  Report Type: Spontaneous
  Country: IT (occurrence: IT)
  Receive Date: 20180323
  Receipt Date: 20180323
  Transmission Date: 20180509
  Serious: Yes (Death, Congenital Anomaly, Other)
  Sender: FDA-Public Use
  Company Number: IT-VISTAPHARM, INC.-VER201803-000506

PATIENT
  Sex: Female
  Weight: 2.35 kg

DRUGS (1)
  1. METHADONE [Suspect]
     Active Substance: METHADONE HYDROCHLORIDE
     Indication: PRODUCT USED FOR UNKNOWN INDICATION
     Route: 064

REACTIONS (5)
  - Brain injury [Fatal]
  - Petechiae [Unknown]
  - Foetal exposure during pregnancy [Unknown]
  - Skin maceration [Fatal]
  - Lip discolouration [Unknown]
